FAERS Safety Report 6640353-7 (Version None)
Quarter: 2010Q1

REPORT INFORMATION
  Report Type: 
  Country: None (occurrence: None)
  Receive Date: 20100318
  Receipt Date: 20100309
  Transmission Date: 20100710
  Serious: Yes (Hospitalization)
  Sender: FDA-Public Use
  Company Number: US-WYE-H13972410

PATIENT
  Sex: Male

DRUGS (15)
  1. RAPAMUNE [Suspect]
     Indication: TRANSPLANT
     Dosage: CURRENTLY 2 MG/DAY
     Dates: start: 20100101
  2. CALCIUM CARBONATE [Concomitant]
  3. COLECALCIFEROL [Concomitant]
     Dosage: 1000 UNIT EVERY 1 DAY
  4. FLUCONAZOLE [Concomitant]
     Route: 048
  5. FOLIC ACID [Concomitant]
  6. FOSPHENYTOIN [Concomitant]
     Dosage: UNSPECIFIED DOSE Q12H
  7. LANSOPRAZOLE [Concomitant]
  8. LEVETIRACETAM [Concomitant]
     Route: 042
  9. PENICILLIN NOS [Concomitant]
     Route: 048
  10. PREDNISONE [Concomitant]
  11. SODIUM BICARBONATE [Concomitant]
  12. SODIUM CHLORIDE [Concomitant]
  13. SULFAMETHOXAZOLE AND TRIMETHOPRIM [Concomitant]
     Dosage: 200-40/5 ON FRI-SAT-SUN
  14. POTASSIUM PHOSPHATE DIBASIC/POTASSIUM PHOSPHATE MONOBASIC [Concomitant]
  15. AMLODIPINE [Concomitant]

REACTIONS (2)
  - CEREBRAL INFARCTION [None]
  - CONVULSION [None]
